FAERS Safety Report 5286008-5 (Version None)
Quarter: 2007Q1

REPORT INFORMATION
  Report Type: 
  Country: None (occurrence: None)
  Receive Date: 20070329
  Receipt Date: 20070314
  Transmission Date: 20070707
  Serious: Yes (Disabling, Other)
  Sender: FDA-Public Use
  Company Number: DSA_29580_2007

PATIENT
  Sex: Female
  Weight: 47.1741 kg

DRUGS (4)
  1. NIFEDIPINE [Suspect]
     Indication: HYPERTENSION
     Dosage: 60 MG Q DAY PO
     Route: 048
     Dates: end: 20070109
  2. LISINOPRIL [Suspect]
     Indication: HYPERTENSION
     Dosage: 10 MG Q DAY PO
     Route: 048
     Dates: start: 20061001, end: 20061010
  3. LISINOPRIL [Suspect]
     Indication: HYPERTENSION
     Dosage: VAR UNK PO
     Route: 048
  4. ATENOLOL [Concomitant]

REACTIONS (3)
  - IMPAIRED DRIVING ABILITY [None]
  - VISION BLURRED [None]
  - VISUAL DISTURBANCE [None]
